FAERS Safety Report 19688722 (Version 2)
Quarter: 2021Q3

REPORT INFORMATION
  Report Type: Spontaneous
  Country: US (occurrence: US)
  Receive Date: 20210811
  Receipt Date: 20210908
  Transmission Date: 20211014
  Serious: No
  Sender: FDA-Public Use
  Company Number: US-SA-2021SA262720

PATIENT
  Age: 12 Year
  Sex: Male

DRUGS (10)
  1. DUPIXENT [Suspect]
     Active Substance: DUPILUMAB
     Indication: ECZEMA INFANTILE
     Dosage: 300 MG, QOW
     Route: 058
     Dates: start: 20210319
  2. FLOVENT [Concomitant]
     Active Substance: FLUTICASONE PROPIONATE
  3. GUANFACINE. [Concomitant]
     Active Substance: GUANFACINE
  4. OFLOXACIN. [Concomitant]
     Active Substance: OFLOXACIN
  5. VYVANSE [Concomitant]
     Active Substance: LISDEXAMFETAMINE DIMESYLATE
  6. VYVANSE [Concomitant]
     Active Substance: LISDEXAMFETAMINE DIMESYLATE
  7. ALBUTEROL [SALBUTAMOL] [Concomitant]
     Active Substance: ALBUTEROL
  8. FLONASE [Concomitant]
     Active Substance: FLUTICASONE PROPIONATE
  9. ALBUTEROL [SALBUTAMOL] [Concomitant]
     Active Substance: ALBUTEROL
  10. FLOVENT [Concomitant]
     Active Substance: FLUTICASONE PROPIONATE

REACTIONS (5)
  - Rash [Not Recovered/Not Resolved]
  - Product use in unapproved indication [Unknown]
  - Eczema [Not Recovered/Not Resolved]
  - Product dose omission issue [Unknown]
  - Sleep disorder [Not Recovered/Not Resolved]

NARRATIVE: CASE EVENT DATE: 20210319
